FAERS Safety Report 15630271 (Version 1)
Quarter: 2018Q4

REPORT INFORMATION
  Report Type: Spontaneous
  Country: US (occurrence: US)
  Receive Date: 20181117
  Receipt Date: 20181117
  Transmission Date: 20190205
  Serious: Yes (Other)
  Sender: FDA-Public Use
  Company Number: None

PATIENT
  Age: 37 Year
  Sex: Female
  Weight: 63 kg

DRUGS (6)
  1. LEVOFLOXACIN. [Concomitant]
     Active Substance: LEVOFLOXACIN
  2. LEVAQUIN [Suspect]
     Active Substance: LEVOFLOXACIN
     Indication: PHARYNGITIS BACTERIAL
     Dosage: ?          QUANTITY:7 TABLET(S);?
     Route: 048
  3. KLONOPIN [Concomitant]
     Active Substance: CLONAZEPAM
  4. TRAMADOL. [Concomitant]
     Active Substance: TRAMADOL
  5. IBUPROFEN. [Concomitant]
     Active Substance: IBUPROFEN
  6. LYRICA [Concomitant]
     Active Substance: PREGABALIN

REACTIONS (6)
  - Limb discomfort [None]
  - Rheumatoid arthritis [None]
  - Fall [None]
  - Musculoskeletal disorder [None]
  - Arthralgia [None]
  - Back pain [None]

NARRATIVE: CASE EVENT DATE: 20180915
